FAERS Safety Report 24629858 (Version 1)
Quarter: 2024Q4

REPORT INFORMATION
  Report Type: Spontaneous
  Country: GB (occurrence: None)
  Receive Date: 20241118
  Receipt Date: 20241118
  Transmission Date: 20250115
  Serious: Yes (Hospitalization, Other)
  Sender: MARNEL PHARMACEUTICALS LLC
  Company Number: GB-Marnel Pharmaceuticals LLC-APL202411-000113

PATIENT
  Age: 34 Year
  Sex: Male

DRUGS (1)
  1. NITROGLYCERIN [Suspect]
     Active Substance: NITROGLYCERIN
     Indication: Chest pain
     Dosage: UNKNOWN

REACTIONS (2)
  - Urticaria [Unknown]
  - Throat tightness [Unknown]
